FAERS Safety Report 12329697 (Version 2)
Quarter: 2016Q2

REPORT INFORMATION
  Report Type: Report from Study
  Country: PL (occurrence: PL)
  Receive Date: 20160503
  Receipt Date: 20160608
  Transmission Date: 20160815
  Serious: Yes (Hospitalization, Other)
  Sender: FDA-Public Use
  Company Number: PHHY2015PL174147

PATIENT
  Age: 42 Year
  Sex: Male
  Weight: 80 kg

DRUGS (1)
  1. TASIGNA [Suspect]
     Active Substance: NILOTINIB
     Indication: PRODUCT USED FOR UNKNOWN INDICATION
     Dosage: 400 MG, BID (2 X 400)
     Route: 048
     Dates: start: 20140925, end: 20160404

REACTIONS (3)
  - Musculoskeletal pain [Unknown]
  - Disease progression [Unknown]
  - Blast cells present [Unknown]

NARRATIVE: CASE EVENT DATE: 201510
